FAERS Safety Report 9393325 (Version 2)
Quarter: 2013Q3

REPORT INFORMATION
  Report Type: Spontaneous
  Country: BR (occurrence: BR)
  Receive Date: 20130710
  Receipt Date: 20130816
  Transmission Date: 20140515
  Serious: Yes (Hospitalization, Other)
  Sender: FDA-Public Use
  Company Number: BR-ASTRAZENECA-2013SE50716

PATIENT
  Age: 76 Year
  Sex: Male
  Weight: 112 kg

DRUGS (16)
  1. CRESTOR [Suspect]
     Route: 048
     Dates: start: 1998
  2. BRILINTA [Suspect]
     Indication: PROPHYLAXIS
     Route: 048
     Dates: start: 2013
  3. CARDIZEM [Concomitant]
     Indication: CARDIAC DISORDER
  4. DIURIX [Concomitant]
     Indication: GOUT
  5. LASIX [Concomitant]
     Indication: GOUT
     Dosage: 1 TABLET MORNING AND HALF TABLET AFTERNOON
  6. RAPID ACTING INSULIN [Concomitant]
     Indication: DIABETES MELLITUS
  7. LANTUS [Concomitant]
     Indication: DIABETES MELLITUS
  8. HUMALOG [Concomitant]
     Indication: DIABETES MELLITUS
  9. IMOSEC [Concomitant]
     Indication: FLATULENCE
     Dates: start: 2013
  10. IMOSEC [Concomitant]
     Indication: FREQUENT BOWEL MOVEMENTS
     Dates: start: 2013
  11. CARVEDILOL [Concomitant]
  12. ALDACTONE [Concomitant]
  13. LEXAPRO [Concomitant]
     Indication: DEPRESSION
  14. PARIET [Concomitant]
     Indication: FLATULENCE
  15. OLCADIL [Concomitant]
  16. SYNTHROID [Concomitant]

REACTIONS (10)
  - Coronary artery occlusion [Not Recovered/Not Resolved]
  - Bronchopneumonia [Recovered/Resolved]
  - Arthritis [Unknown]
  - Vascular graft occlusion [Not Recovered/Not Resolved]
  - Dyspnoea [Not Recovered/Not Resolved]
  - Dizziness [Not Recovered/Not Resolved]
  - Flatulence [Not Recovered/Not Resolved]
  - Frequent bowel movements [Not Recovered/Not Resolved]
  - Hypoglycaemia [Unknown]
  - Gait disturbance [Not Recovered/Not Resolved]
